FAERS Safety Report 7569591-6 (Version None)
Quarter: 2011Q2

REPORT INFORMATION
  Report Type: 
  Country: None (occurrence: None)
  Receive Date: 20110621
  Receipt Date: 20110621
  Transmission Date: 20111010
  Serious: Yes (Disabling)
  Sender: FDA-Public Use
  Company Number: None

PATIENT
  Age: 38 Year
  Sex: Male
  Weight: 77.1115 kg

DRUGS (1)
  1. ASTROGLIDE BIOFILM, INC VISTA, CA 92081 [Suspect]
     Indication: INADEQUATE LUBRICATION
     Dates: start: 20110304

REACTIONS (2)
  - PENILE PAIN [None]
  - FEELING ABNORMAL [None]
